FAERS Safety Report 9022832 (Version 1)
Quarter: 2013Q1

REPORT INFORMATION
  Report Type: Spontaneous
  Country: None (occurrence: US)
  Receive Date: 20130120
  Receipt Date: 20130120
  Transmission Date: 20140127
  Serious: No
  Sender: FDA-Public Use
  Company Number: US-ALLERGAN-1217350US

PATIENT
  Age: 14 Year
  Sex: Female

DRUGS (2)
  1. BOTOX? [Suspect]
     Indication: HYPERHIDROSIS
     Dosage: UNK, SINGLE
     Route: 030
     Dates: start: 20120919, end: 20120919
  2. DORYX                              /00055701/ [Concomitant]
     Indication: ACNE
     Dosage: 150 MG, QD
     Route: 048
     Dates: start: 20121114

REACTIONS (1)
  - Drug ineffective [Unknown]
